FAERS Safety Report 18458426 (Version 2)
Quarter: 2020Q4

REPORT INFORMATION
  Report Type: Spontaneous
  Country: US (occurrence: US)
  Receive Date: 20201103
  Receipt Date: 20201104
  Transmission Date: 20210114
  Serious: Yes (Disabling)
  Sender: FDA-Public Use
  Company Number: US-SA-2020SA304163

PATIENT

DRUGS (1)
  1. LANTUS SOLOSTAR [Suspect]
     Active Substance: INSULIN GLARGINE
     Indication: TYPE 1 DIABETES MELLITUS
     Dosage: 10 UNIT AT NIGHT
     Route: 065

REACTIONS (4)
  - Wrong technique in product usage process [Unknown]
  - Product dose omission issue [Unknown]
  - Blood glucose increased [Unknown]
  - Gait inability [Unknown]
